FAERS Safety Report 20619724 (Version 1)
Quarter: 2022Q1

REPORT INFORMATION
  Report Type: Report from Study
  Country: US (occurrence: US)
  Receive Date: 20220322
  Receipt Date: 20220322
  Transmission Date: 20220423
  Serious: Yes (Other)
  Sender: FDA-Public Use
  Company Number: US-GILEAD-2022-0574255

PATIENT
  Age: 25 Year
  Sex: Female

DRUGS (2)
  1. AZTREONAM LYSINE [Suspect]
     Active Substance: AZTREONAM LYSINE
     Indication: Cystic fibrosis
     Dosage: 75 MG, TID, 28 DAYS ON THEN 28 DAYS OFF
     Route: 055
  2. TOBRAMYCIN [Concomitant]
     Active Substance: TOBRAMYCIN

REACTIONS (2)
  - Cystic fibrosis [Unknown]
  - COVID-19 [Unknown]

NARRATIVE: CASE EVENT DATE: 20220126
